FAERS Safety Report 23867741 (Version 1)
Quarter: 2024Q2

REPORT INFORMATION
  Report Type: Spontaneous
  Country: FR (occurrence: FR)
  Receive Date: 20240517
  Receipt Date: 20240517
  Transmission Date: 20240715
  Serious: Yes (Hospitalization)
  Sender: FDA-Public Use
  Company Number: None

PATIENT
  Age: 40 Year
  Sex: Female
  Weight: 56 kg

DRUGS (5)
  1. ROCURONIUM BROMIDE [Suspect]
     Active Substance: ROCURONIUM BROMIDE
     Indication: Anaesthesia
     Dosage: ROUTE OF ADMIN: INTRAVENOUS USE
     Dates: start: 20240422, end: 20240422
  2. DEXAMETHASONE [Concomitant]
     Active Substance: DEXAMETHASONE
     Indication: Product used for unknown indication
     Dosage: ROA: INTRAVENOUS USE
     Dates: start: 20240422, end: 20240422
  3. MIDAZOLAM [Concomitant]
     Active Substance: MIDAZOLAM
     Indication: Anaesthesia
     Dosage: ROA: INTRAVENOUS USE
     Dates: start: 20240422, end: 20240422
  4. PROPOFOL [Concomitant]
     Active Substance: PROPOFOL
     Indication: Anaesthesia
     Dosage: ROA: INTRAVENOUS USE
     Dates: start: 20240422, end: 20240422
  5. ESKESIA [ESKETAMINE (HYDROCHLORIDE)] [Concomitant]
     Indication: Anaesthesia
     Dosage: ROA: INTRAVENOUS USE
     Dates: start: 20240422, end: 20240422

REACTIONS (1)
  - Anaphylactic shock [Recovered/Resolved]

NARRATIVE: CASE EVENT DATE: 20240422
